FAERS Safety Report 8046231-3 (Version None)
Quarter: 2012Q1

REPORT INFORMATION
  Report Type: 
  Country: None (occurrence: None)
  Receive Date: 20120113
  Receipt Date: 20120109
  Transmission Date: 20120608
  Serious: Yes (Hospitalization, Other)
  Sender: FDA-Public Use
  Company Number: FR-PFIZER INC-K201100976

PATIENT
  Age: 72 Year
  Sex: Female

DRUGS (16)
  1. MORPHINE SULFATE [Concomitant]
     Indication: PAIN
     Dosage: 40 MG, 1X/DAY
     Route: 048
  2. PREDNISONE TAB [Concomitant]
     Indication: RHEUMATOID ARTHRITIS
     Dosage: 15 MG, 1X/DAY
     Route: 048
  3. LEXOMIL [Concomitant]
     Dosage: 0.5 TABLET, QD
     Route: 048
  4. POLYETHYLENE GLYCOL [Concomitant]
     Indication: CONSTIPATION
     Dosage: 4 G, 1X/DAY
     Route: 048
  5. RABEPRAZOLE SODIUM [Concomitant]
     Indication: PROPHYLAXIS AGAINST GASTROINTESTINAL ULCER
     Dosage: 20 MG, 1X/DAY
     Route: 048
  6. LEVOTHYROXINE SODIUM [Concomitant]
     Indication: HYPOTHYROIDISM
     Dosage: 75 UG, 1X/DAY
     Route: 048
  7. DUOPLAVIN [Suspect]
     Indication: ANGINA PECTORIS
     Dosage: 75 MG, 1X/DAY
     Route: 048
     Dates: start: 20110420
  8. LOVENOX [Concomitant]
     Indication: THROMBOSIS PROPHYLAXIS
     Dosage: 0.4 ML, 1X/DAY
     Route: 058
  9. LASIX [Suspect]
     Indication: HYPERTENSION
     Dosage: 40 MG, 2X/DAY
     Route: 048
  10. RAMIPRIL [Suspect]
     Indication: HYPERTENSION
     Dosage: 1.25 MG, 1X/DAY
     Route: 048
  11. CRESTOR [Concomitant]
     Indication: DYSLIPIDAEMIA
     Dosage: 20 MG, 1X/DAY
     Route: 048
  12. LANTUS [Concomitant]
     Indication: DIABETES MELLITUS
     Dosage: 32 IU, 1X/DAY
     Route: 058
  13. NOVORAPID [Concomitant]
     Indication: DIABETES MELLITUS
     Dosage: 38 IU, 1X/DAY
     Route: 058
  14. OMNIPAQUE 140 [Suspect]
     Indication: ARTERIOGRAM CORONARY
     Dosage: 300 MG, SINGLE
     Route: 042
     Dates: start: 20110605, end: 20110605
  15. ZOLEDRONIC ACID [Suspect]
     Indication: OSTEOPOROSIS
     Dosage: 5 MG, SINGLE
     Route: 042
     Dates: start: 20110531, end: 20110531
  16. MORPHINE SULFATE [Concomitant]
     Indication: PAIN
     Dosage: 40 MG, 1X/DAY
     Route: 048

REACTIONS (12)
  - RHEUMATOID ARTHRITIS [None]
  - PULMONARY OEDEMA [None]
  - CREATININE RENAL CLEARANCE DECREASED [None]
  - ACIDOSIS [None]
  - ANTINUCLEAR ANTIBODY POSITIVE [None]
  - ANGINA UNSTABLE [None]
  - CARDIAC DISORDER [None]
  - HAEMATURIA [None]
  - PROTEINURIA [None]
  - BLOOD CREATININE INCREASED [None]
  - RENAL FAILURE ACUTE [None]
  - BLOOD UREA INCREASED [None]
